FAERS Safety Report 16702218 (Version 1)
Quarter: 2019Q3

REPORT INFORMATION
  Report Type: Report from Study
  Country: DE (occurrence: DE)
  Receive Date: 20190814
  Receipt Date: 20190814
  Transmission Date: 20191004
  Serious: Yes (Hospitalization)
  Sender: FDA-Public Use
  Company Number: DE-UCBSA-2019033140

PATIENT
  Sex: Female

DRUGS (2)
  1. CERTOLIZUMAB PEGOL [Suspect]
     Active Substance: CERTOLIZUMAB PEGOL
     Indication: RHEUMATOID ARTHRITIS
     Dosage: STRENGTH:200MG
     Dates: start: 201712, end: 201809
  2. OLUMIANT [Concomitant]
     Active Substance: BARICITINIB
     Indication: RHEUMATOID ARTHRITIS
     Dosage: UNK
     Dates: start: 201810, end: 201812

REACTIONS (4)
  - Chronic gastritis [Unknown]
  - Duodenal ulcer [Unknown]
  - Upper gastrointestinal haemorrhage [Unknown]
  - Mallory-Weiss syndrome [Unknown]

NARRATIVE: CASE EVENT DATE: 201812
